FAERS Safety Report 24297548 (Version 2)
Quarter: 2024Q3

REPORT INFORMATION
  Report Type: Spontaneous
  Country: US (occurrence: US)
  Receive Date: 20240909
  Receipt Date: 20240916
  Transmission Date: 20241017
  Serious: No
  Sender: AMGEN
  Company Number: US-AMGEN-USASP2024178399

PATIENT
  Sex: Female

DRUGS (1)
  1. PROLIA [Suspect]
     Active Substance: DENOSUMAB
     Indication: Postmenopausal haemorrhage
     Dosage: 60 MILLIGRAM (JUST ONE DOSE)
     Route: 058
     Dates: start: 2024, end: 2024

REACTIONS (3)
  - Alopecia [Recovered/Resolved]
  - Off label use [Unknown]
  - Lethargy [Unknown]

NARRATIVE: CASE EVENT DATE: 20240101
